FAERS Safety Report 19784362 (Version 2)
Quarter: 2021Q4

REPORT INFORMATION
  Report Type: Spontaneous
  Country: US (occurrence: US)
  Receive Date: 20210903
  Receipt Date: 20211026
  Transmission Date: 20220304
  Serious: Yes (Other)
  Sender: FDA-Public Use
  Company Number: US-JNJFOC-20210856765

PATIENT
  Age: 42 Year
  Sex: Female

DRUGS (11)
  1. ELMIRON [Suspect]
     Active Substance: PENTOSAN POLYSULFATE SODIUM
     Indication: Cystitis interstitial
     Dosage: VARYING DOSE AND FREQUENCY OF 100 MG TWICE A DAY AND 200 MG TWICE A DAY
     Route: 048
     Dates: start: 200004, end: 201207
  2. PREDNISONE [Concomitant]
     Active Substance: PREDNISONE
     Indication: Fibromyalgia
     Route: 065
     Dates: start: 1996
  3. PREDNISONE [Concomitant]
     Active Substance: PREDNISONE
     Indication: Systemic lupus erythematosus
  4. GABAPENTIN [Concomitant]
     Active Substance: GABAPENTIN
     Indication: Fibromyalgia
     Route: 065
     Dates: start: 1996
  5. GABAPENTIN [Concomitant]
     Active Substance: GABAPENTIN
     Indication: Systemic lupus erythematosus
  6. HYDROXYCHLOROQUINE [Concomitant]
     Active Substance: HYDROXYCHLOROQUINE
     Indication: Fibromyalgia
     Route: 065
     Dates: start: 1996
  7. HYDROXYCHLOROQUINE [Concomitant]
     Active Substance: HYDROXYCHLOROQUINE
     Indication: Systemic lupus erythematosus
  8. FUROSEMIDE [Concomitant]
     Active Substance: FUROSEMIDE
     Indication: Hypertension
     Route: 065
     Dates: start: 1997
  9. HYDROCHLOROTHIAZIDE [Concomitant]
     Active Substance: HYDROCHLOROTHIAZIDE
     Indication: Hypertension
     Route: 065
     Dates: start: 1997
  10. OXYCODONE [Concomitant]
     Active Substance: OXYCODONE
     Indication: Pain management
     Route: 065
     Dates: start: 2001
  11. OXYCONTIN [Concomitant]
     Active Substance: OXYCODONE HYDROCHLORIDE
     Indication: Pain management
     Route: 065
     Dates: start: 2011

REACTIONS (4)
  - Macular degeneration [Not Recovered/Not Resolved]
  - Retinal pigmentation [Unknown]
  - Off label use [Unknown]
  - Product use issue [Unknown]

NARRATIVE: CASE EVENT DATE: 20000401
